FAERS Safety Report 13887872 (Version 1)
Quarter: 2017Q3

REPORT INFORMATION
  Report Type: Spontaneous
  Country: CA (occurrence: CA)
  Receive Date: 20170821
  Receipt Date: 20170821
  Transmission Date: 20171127
  Serious: Yes (Death, Hospitalization)
  Sender: FDA-Public Use
  Company Number: CA-MYLANLABS-2017M1051353

PATIENT

DRUGS (1)
  1. PREDNISONE. [Suspect]
     Active Substance: PREDNISONE
     Indication: TEMPORAL ARTERITIS
     Dosage: 40MG DAILY
     Route: 065

REACTIONS (4)
  - Systemic candida [Fatal]
  - Nosocomial infection [Fatal]
  - Necrotising fasciitis [Recovering/Resolving]
  - Serratia infection [Unknown]
